FAERS Safety Report 6366709-8 (Version None)
Quarter: 2009Q3

REPORT INFORMATION
  Report Type: 
  Country: None (occurrence: None)
  Receive Date: 20090921
  Receipt Date: 20090914
  Transmission Date: 20100115
  Serious: Yes (Death)
  Sender: FDA-Public Use
  Company Number: JP-BAYER-200910752BYL

PATIENT
  Age: 68 Year
  Sex: Male
  Weight: 46 kg

DRUGS (13)
  1. FLUDARA [Suspect]
     Indication: ACUTE MYELOID LEUKAEMIA
     Dosage: AS USED: 25 MG/M2  UNIT DOSE: 50 MG
     Route: 042
     Dates: start: 20081216, end: 20081220
  2. MELPHALAN [Concomitant]
     Indication: ACUTE MYELOID LEUKAEMIA
     Dosage: AS USED: 40 MG/M2
     Route: 042
     Dates: start: 20081216, end: 20081217
  3. PROGRAF [Concomitant]
     Dosage: AS USED: 0.1-0.3 ML
     Route: 042
     Dates: start: 20081221, end: 20081224
  4. CELLCEPT [Concomitant]
     Dosage: TOTAL DAILY DOSE: 4000 MG
     Route: 048
     Dates: start: 20081226, end: 20081226
  5. CELLCEPT [Concomitant]
     Dosage: TOTAL DAILY DOSE: 2000 MG
     Route: 048
     Dates: start: 20081227, end: 20081230
  6. CONCENTRATED RED CELLS [Concomitant]
     Indication: PACKED RED BLOOD CELL TRANSFUSION
     Route: 042
     Dates: start: 20081217, end: 20081226
  7. PLATELETS [Concomitant]
     Indication: PLATELET TRANSFUSION
     Route: 042
     Dates: start: 20081217, end: 20081229
  8. MEROPENEM [Concomitant]
     Indication: PNEUMONIA
  9. AMPHOTERICIN B [Concomitant]
     Indication: PNEUMONIA
  10. CEFTAZIDIME [Concomitant]
     Indication: PNEUMONIA
  11. OZEX [Concomitant]
     Indication: PNEUMONIA
  12. VANCOMYCIN [Concomitant]
     Indication: PNEUMONIA
  13. CYLOCIDE [Concomitant]
     Indication: ACUTE MYELOID LEUKAEMIA
     Dosage: AS USED: 100-200 MG/M2
     Route: 042
     Dates: start: 20080816, end: 20081210

REACTIONS (2)
  - PNEUMONIA [None]
  - RENAL FAILURE ACUTE [None]
